FAERS Safety Report 9437678 (Version 1)
Quarter: 2013Q3

REPORT INFORMATION
  Report Type: Spontaneous
  Country: US (occurrence: US)
  Receive Date: 20130802
  Receipt Date: 20130802
  Transmission Date: 20140515
  Serious: Yes (Other)
  Sender: FDA-Public Use
  Company Number: US-ELI_LILLY_AND_COMPANY-US201307009913

PATIENT
  Age: 55 Year
  Sex: Male

DRUGS (2)
  1. EFFIENT [Suspect]
     Dosage: UNK
     Dates: start: 20130715, end: 20130720
  2. TICAGRELOR [Concomitant]

REACTIONS (2)
  - Cerebrovascular accident [Unknown]
  - Thrombosis in device [Unknown]
